FAERS Safety Report 10644731 (Version 3)
Quarter: 2016Q3

REPORT INFORMATION
  Report Type: Report from Study
  Country: DE (occurrence: DE)
  Receive Date: 20141211
  Receipt Date: 20160908
  Transmission Date: 20161109
  Serious: Yes (Hospitalization, Other)
  Sender: FDA-Public Use
  Company Number: DE-ABBVIE-14K-062-1318573-00

PATIENT
  Age: 51 Year
  Sex: Male

DRUGS (3)
  1. METHOTREXATE. [Concomitant]
     Active Substance: METHOTREXATE
     Indication: RHEUMATOID ARTHRITIS
     Route: 058
  2. HUMIRA [Suspect]
     Active Substance: ADALIMUMAB
     Indication: RHEUMATOID ARTHRITIS
     Route: 058
  3. PREDNISOLONE. [Suspect]
     Active Substance: PREDNISOLONE
     Indication: RHEUMATOID ARTHRITIS
     Dosage: 20MG 5 MG
     Route: 048

REACTIONS (5)
  - Bursitis [Recovered/Resolved]
  - Cubital tunnel syndrome [Unknown]
  - Hospitalisation [Unknown]
  - Aspartate aminotransferase decreased [Unknown]
  - Purulence [Recovered/Resolved]

NARRATIVE: CASE EVENT DATE: 20141008
